FAERS Safety Report 19376873 (Version 2)
Quarter: 2021Q2

REPORT INFORMATION
  Report Type: Spontaneous
  Country: US (occurrence: US)
  Receive Date: 20210604
  Receipt Date: 20210607
  Transmission Date: 20210717
  Serious: Yes (Other)
  Sender: FDA-Public Use
  Company Number: US-ASTRAZENECA-2021A466189

PATIENT
  Age: 71 Year
  Sex: Female

DRUGS (4)
  1. ROSUVASTATIN. [Suspect]
     Active Substance: ROSUVASTATIN
     Indication: BLOOD CHOLESTEROL INCREASED
     Route: 048
     Dates: start: 2018
  2. METOPROLOL. [Suspect]
     Active Substance: METOPROLOL
     Route: 065
  3. PFIZER?BIONTECH COVID?19 VACCINE [Suspect]
     Active Substance: TOZINAMERAN
     Dosage: FIRST DOSE AND SECOND DOSE
     Route: 030
     Dates: start: 20210314, end: 20210407
  4. BISOPROLOL [Concomitant]
     Active Substance: BISOPROLOL
     Indication: CARDIAC DISORDER
     Dosage: 1/2 OF 5 MG TABLET
     Dates: start: 20201006

REACTIONS (27)
  - Breast cancer female [Unknown]
  - Cardiac disorder [Unknown]
  - Lung disorder [Unknown]
  - Fall [Unknown]
  - Gastrooesophageal reflux disease [Unknown]
  - Spondylolisthesis [Unknown]
  - Dyspnoea [Unknown]
  - Injection site pain [Unknown]
  - Anxiety [Unknown]
  - Acute myocardial infarction [Unknown]
  - Lacunar stroke [Unknown]
  - Joint dislocation [Unknown]
  - Alopecia [Unknown]
  - Dehydration [Unknown]
  - Urinary retention [Unknown]
  - Foot fracture [Unknown]
  - Malaise [Unknown]
  - Hiatus hernia [Unknown]
  - Urinary tract infection [Unknown]
  - Osteopenia [Unknown]
  - Infectious mononucleosis [Unknown]
  - Migraine with aura [Unknown]
  - Rib fracture [Unknown]
  - Hypersensitivity [Unknown]
  - Macular degeneration [Unknown]
  - Chest pain [Unknown]
  - Periodontal disease [Unknown]

NARRATIVE: CASE EVENT DATE: 2018
